FAERS Safety Report 19362227 (Version 1)
Quarter: 2021Q2

REPORT INFORMATION
  Report Type: Spontaneous
  Country: US (occurrence: US)
  Receive Date: 20210603
  Receipt Date: 20210603
  Transmission Date: 20210717
  Serious: Yes (Hospitalization, Other)
  Sender: FDA-Public Use
  Company Number: US-CIPLA LTD.-2021US03882

PATIENT

DRUGS (1)
  1. VALACYCLOVIR [Suspect]
     Active Substance: VALACYCLOVIR HYDROCHLORIDE
     Dosage: UNK
     Route: 064

REACTIONS (4)
  - Large for dates baby [Unknown]
  - Fat necrosis [Recovered/Resolved with Sequelae]
  - Foetal distress syndrome [Unknown]
  - Foetal exposure during pregnancy [Unknown]
